FAERS Safety Report 15243374 (Version 15)
Quarter: 2022Q4

REPORT INFORMATION
  Report Type: Report from Study
  Country: BR (occurrence: BR)
  Receive Date: 20180806
  Receipt Date: 20221123
  Transmission Date: 20230113
  Serious: Yes (Hospitalization, Other)
  Sender: FDA-Public Use
  Company Number: NF427105

PATIENT
  Age: 55 Year
  Sex: Female
  Weight: 100 kg

DRUGS (9)
  1. ALEMTUZUMAB [Suspect]
     Active Substance: ALEMTUZUMAB
     Indication: Multiple sclerosis
     Dosage: 3 DF (ONCE A YEAR)
     Route: 041
     Dates: start: 20180314, end: 20180316
  2. ALEMTUZUMAB [Suspect]
     Active Substance: ALEMTUZUMAB
     Dosage: 3 DF
     Route: 041
     Dates: start: 20170221
  3. SERTRALINE [Concomitant]
     Active Substance: SERTRALINE HYDROCHLORIDE
     Indication: Depression
     Dosage: 50 MG, QD
     Route: 048
  4. OXYBUTYNINE [OXYBUTYNIN HYDROCHLORIDE] [Concomitant]
     Indication: Urinary incontinence
     Dosage: 5 MG, QD
     Route: 065
  5. DOXAZOSIN [Concomitant]
     Active Substance: DOXAZOSIN MESYLATE
     Indication: Urinary incontinence
     Dosage: 2 MG, QD
     Route: 048
  6. METHYLPREDNISOLONE [Concomitant]
     Active Substance: METHYLPREDNISOLONE
     Indication: Prophylaxis
     Dosage: 1000 MG, QD
     Route: 065
  7. ONDANSETRON [Concomitant]
     Active Substance: ONDANSETRON
     Indication: Prophylaxis
     Dosage: 4 MG, TID
     Route: 065
  8. DIPHENHYDRAMINE [Concomitant]
     Active Substance: DIPHENHYDRAMINE
     Indication: Prophylaxis
     Dosage: 10 MG, TID
     Route: 065
  9. AMOXICILLIN [Concomitant]
     Active Substance: AMOXICILLIN
     Indication: Urinary tract infection

REACTIONS (27)
  - Bradycardia [Recovered/Resolved]
  - Arrhythmia [Not Recovered/Not Resolved]
  - Cold sweat [Recovered/Resolved]
  - Hypertension [Recovered/Resolved]
  - Dyspnoea exertional [Recovered/Resolved]
  - Immunodeficiency [Recovering/Resolving]
  - Leukopenia [Recovering/Resolving]
  - Neutropenia [Recovering/Resolving]
  - Demyelination [Unknown]
  - Myocarditis [Unknown]
  - Neurogenic bladder [Not Recovered/Not Resolved]
  - Urinary incontinence [Recovering/Resolving]
  - Hypersensitivity [Recovering/Resolving]
  - Cardiac disorder [Unknown]
  - Asthenia [Recovering/Resolving]
  - Multiple sclerosis relapse [Recovering/Resolving]
  - Memory impairment [Recovered/Resolved]
  - Gait disturbance [Not Recovered/Not Resolved]
  - Vitamin D decreased [Recovering/Resolving]
  - Overweight [Unknown]
  - Zinc deficiency [Recovering/Resolving]
  - Tendonitis [Not Recovered/Not Resolved]
  - Pain [Not Recovered/Not Resolved]
  - Neck pain [Recovering/Resolving]
  - Infection [Recovered/Resolved]
  - Urinary tract infection [Not Recovered/Not Resolved]
  - Bacterial test positive [Recovered/Resolved]

NARRATIVE: CASE EVENT DATE: 20180315
